FAERS Safety Report 9575729 (Version 1)
Quarter: 2013Q4

REPORT INFORMATION
  Report Type: Spontaneous
  Country: US (occurrence: US)
  Receive Date: 20131001
  Receipt Date: 20131001
  Transmission Date: 20140711
  Serious: No
  Sender: FDA-Public Use
  Company Number: US-AMGEN-USASP2012049792

PATIENT
  Age: 78 Year
  Sex: Female
  Weight: 62.59 kg

DRUGS (2)
  1. PROCRIT [Suspect]
     Indication: MYELODYSPLASTIC SYNDROME
     Dosage: 20000 IU, UNK
     Route: 058
     Dates: start: 20120425
  2. PROCRIT [Suspect]
     Dosage: 25000 IU, UNK
     Route: 058
     Dates: start: 201205, end: 2012

REACTIONS (3)
  - Rhinorrhoea [Not Recovered/Not Resolved]
  - Haemoglobin decreased [Unknown]
  - Hypersensitivity [Not Recovered/Not Resolved]
